FAERS Safety Report 8710332 (Version 2)
Quarter: 2012Q4

REPORT INFORMATION
  Report Type: 
  Country: FR (occurrence: FR)
  Receive Date: 20120807
  Receipt Date: 20121226
  Transmission Date: 20130627
  Serious: Yes (Life-Threatening, Hospitalization)
  Sender: FDA-Public Use
  Company Number: FR-BRISTOL-MYERS SQUIBB COMPANY-16823320

PATIENT
  Age: 81 Year
  Sex: Male

DRUGS (2)
  1. TAXOL INJ [Suspect]
     Indication: LUNG SQUAMOUS CELL CARCINOMA STAGE UNSPECIFIED
     Route: 042
     Dates: start: 20120706
  2. CARBOPLATINE [Interacting]
     Indication: LUNG SQUAMOUS CELL CARCINOMA STAGE UNSPECIFIED
     Dosage: Hospira
     Route: 042
     Dates: start: 20120706

REACTIONS (3)
  - Acute respiratory distress syndrome [Recovered/Resolved]
  - Drug interaction [Unknown]
  - Pleural effusion [Unknown]
